FAERS Safety Report 5471056-2 (Version None)
Quarter: 2007Q3

REPORT INFORMATION
  Report Type: 
  Country: None (occurrence: None)
  Receive Date: 20070928
  Receipt Date: 20061220
  Transmission Date: 20080115
  Serious: No
  Sender: FDA-Public Use
  Company Number: A0629678A

PATIENT
  Age: 6 Year
  Sex: Female
  Weight: 36.4 kg

DRUGS (2)
  1. LAMICTAL [Suspect]
     Dosage: 5MG UNKNOWN
     Route: 048
     Dates: end: 20061101
  2. NO CONCURRENT MEDICATIONS [Concomitant]

REACTIONS (1)
  - RASH [None]
